FAERS Safety Report 8313920-2 (Version None)
Quarter: 2012Q2

REPORT INFORMATION
  Report Type: 
  Country: None (occurrence: None)
  Receive Date: 20120426
  Receipt Date: 20120426
  Transmission Date: 20120825
  Serious: Yes (Death, Life-Threatening, Hospitalization)
  Sender: FDA-Public Use
  Company Number: None

PATIENT
  Age: 69 Year
  Sex: Male
  Weight: 53.2 kg

DRUGS (1)
  1. DABIGATRAN [Suspect]
     Indication: ATRIAL FIBRILLATION
     Dosage: 150MG
     Route: 048
     Dates: start: 20120101, end: 20120203

REACTIONS (9)
  - FALL [None]
  - CONFUSIONAL STATE [None]
  - CARDIO-RESPIRATORY ARREST [None]
  - VENTRICULAR TACHYCARDIA [None]
  - SUBARACHNOID HAEMORRHAGE [None]
  - SYNCOPE [None]
  - HEAD INJURY [None]
  - AGITATION [None]
  - UNRESPONSIVE TO STIMULI [None]
